FAERS Safety Report 9056564 (Version 2)
Quarter: 2013Q1

REPORT INFORMATION
  Report Type: Report from Study
  Country: HU (occurrence: HU)
  Receive Date: 20130204
  Receipt Date: 20130301
  Transmission Date: 20140127
  Serious: Yes (Death)
  Sender: FDA-Public Use
  Company Number: HU-GLAXOSMITHKLINE-B0864740A

PATIENT
  Sex: Female

DRUGS (5)
  1. SERETIDE [Suspect]
     Indication: CHRONIC OBSTRUCTIVE PULMONARY DISEASE
     Dosage: 1PUFF TWICE PER DAY
     Route: 055
     Dates: start: 201205, end: 20121220
  2. AMBROXOL [Concomitant]
  3. THEOSPIREX [Concomitant]
  4. FRONTIN [Concomitant]
  5. ANTIBIOTICS [Concomitant]

REACTIONS (1)
  - Apnoea [Fatal]
